FAERS Safety Report 8045102-6 (Version None)
Quarter: 2012Q1

REPORT INFORMATION
  Report Type: 
  Country: None (occurrence: None)
  Receive Date: 20120113
  Receipt Date: 20120111
  Transmission Date: 20120608
  Serious: Yes (Hospitalization)
  Sender: FDA-Public Use
  Company Number: PHHY2012NL002201

PATIENT
  Sex: Male

DRUGS (3)
  1. ZOMETA [Suspect]
     Indication: METASTASES TO PROSTATE
     Dosage: 4 MG/100 ML, PER 28 DAYS
     Route: 042
     Dates: start: 20110802
  2. ZOMETA [Suspect]
     Dosage: 4 MG/100 ML, PER 28 DAYS
     Route: 042
     Dates: start: 20111213
  3. ZOMETA [Suspect]
     Dosage: 4 MG/100 ML, PER 28 DAYS
     Route: 042
     Dates: start: 20120111

REACTIONS (1)
  - PNEUMONIA [None]
